FAERS Safety Report 4992504-8 (Version None)
Quarter: 2006Q1

REPORT INFORMATION
  Report Type: 
  Country: None (occurrence: None)
  Receive Date: 20060314
  Receipt Date: 20051221
  Transmission Date: 20060701
  Serious: Yes (Hospitalization)
  Sender: FDA-Public Use
  Company Number: 2005-02613

PATIENT
  Age: 77 Year
  Sex: Male

DRUGS (4)
  1. VELCADE [Suspect]
     Indication: MULTIPLE MYELOMA
     Dosage: SEE IMAGE, ORAL
     Route: 048
     Dates: start: 20050923, end: 20051001
  2. VELCADE [Suspect]
     Indication: MULTIPLE MYELOMA
     Dosage: SEE IMAGE, ORAL
     Route: 048
     Dates: start: 20051108
  3. THALOMID [Suspect]
     Indication: MULTIPLE MYELOMA
     Dosage: 100.00 MG, QD, ORAL
     Route: 048
     Dates: start: 20050909, end: 20050901
  4. NORVASC [Concomitant]

REACTIONS (4)
  - ERYTHEMA [None]
  - OEDEMA PERIPHERAL [None]
  - PNEUMONIA [None]
  - RASH GENERALISED [None]
